FAERS Safety Report 25756186 (Version 1)
Quarter: 2025Q3

REPORT INFORMATION
  Report Type: Spontaneous
  Country: US (occurrence: None)
  Receive Date: 20250903
  Receipt Date: 20250903
  Transmission Date: 20251021
  Serious: Yes (Death)
  Sender: FDA-CTU
  Company Number: None

PATIENT
  Age: 75 Year
  Sex: Female

DRUGS (10)
  1. TACROLIMUS [Suspect]
     Active Substance: TACROLIMUS
     Indication: Lung transplant
     Dosage: FREQUENCY : TWICE A DAY;?
     Route: 048
     Dates: start: 20191016
  2. OMEGA 3 [Concomitant]
     Active Substance: CAPSAICIN
  3. MYCOPHENOLIC ACID [Concomitant]
     Active Substance: MYCOPHENOLIC ACID
  4. INSULIN ASPART [Concomitant]
     Active Substance: INSULIN ASPART
  5. SODIUM BICARBONATE [Concomitant]
     Active Substance: SODIUM BICARBONATE
  6. MONTELUKAST [Concomitant]
     Active Substance: MONTELUKAST
  7. DULOXETINE [Concomitant]
     Active Substance: DULOXETINE
  8. PREDNISONE [Concomitant]
     Active Substance: PREDNISONE
  9. BUMETANIDE [Concomitant]
     Active Substance: BUMETANIDE
  10. VALGANCICLOVIR HYDROCHLORIDE [Concomitant]
     Active Substance: VALGANCICLOVIR HYDROCHLORIDE

REACTIONS (1)
  - Death [None]

NARRATIVE: CASE EVENT DATE: 20250701
